FAERS Safety Report 8031325-9 (Version None)
Quarter: 2012Q1

REPORT INFORMATION
  Report Type: 
  Country: None (occurrence: None)
  Receive Date: 20120109
  Receipt Date: 20111025
  Transmission Date: 20120608
  Serious: Yes (Other)
  Sender: FDA-Public Use
  Company Number: GB-GLAXOSMITHKLINE-B0758123A

PATIENT
  Age: 32 Year
  Sex: Female

DRUGS (1)
  1. MALARONE [Suspect]
     Indication: MALARIA PROPHYLAXIS
     Route: 065
     Dates: start: 20110928, end: 20111021

REACTIONS (2)
  - MATERNAL EXPOSURE DURING PREGNANCY [None]
  - ABORTION SPONTANEOUS [None]
